FAERS Safety Report 19212047 (Version 1)
Quarter: 2021Q2

REPORT INFORMATION
  Report Type: Spontaneous
  Country: US (occurrence: US)
  Receive Date: 20210503
  Receipt Date: 20210503
  Transmission Date: 20210717
  Serious: Yes (Hospitalization, Disabling, Other)
  Sender: FDA-Public Use
  Company Number: None

PATIENT
  Age: 18 Year
  Sex: Female
  Weight: 70.31 kg

DRUGS (1)
  1. NEXPLANON [Suspect]
     Active Substance: ETONOGESTREL
     Dates: start: 20190201

REACTIONS (5)
  - Fatigue [None]
  - Amenorrhoea [None]
  - Dyspnoea [None]
  - Device dislocation [None]
  - Nausea [None]

NARRATIVE: CASE EVENT DATE: 20190314
